FAERS Safety Report 24569689 (Version 1)
Quarter: 2024Q4

REPORT INFORMATION
  Report Type: Spontaneous
  Country: ES (occurrence: ES)
  Receive Date: 20241031
  Receipt Date: 20241031
  Transmission Date: 20250114
  Serious: Yes (Other)
  Sender: MYLAN
  Company Number: ES-ORGANON-O2410ESP001034

PATIENT
  Sex: Male

DRUGS (2)
  1. PREGABALIN [Suspect]
     Active Substance: PREGABALIN
     Indication: Product used for unknown indication
     Dosage: UNK
     Route: 065
     Dates: start: 2024
  2. ARCOXIA [Suspect]
     Active Substance: ETORICOXIB
     Indication: Psoriatic arthropathy
     Dosage: UNK UNK, QD
     Route: 048
     Dates: start: 2024

REACTIONS (5)
  - Psoriatic arthropathy [Unknown]
  - Weight increased [Unknown]
  - Increased appetite [Unknown]
  - Somnolence [Unknown]
  - Libido decreased [Unknown]

NARRATIVE: CASE EVENT DATE: 20240101
